FAERS Safety Report 9742221 (Version 4)
Quarter: 2014Q2

REPORT INFORMATION
  Report Type: Spontaneous
  Country: US (occurrence: US)
  Receive Date: 20131210
  Receipt Date: 20140401
  Transmission Date: 20141212
  Serious: Yes (Death, Hospitalization, Other)
  Sender: FDA-Public Use
  Company Number: US-ASTELLAS-2013US012743

PATIENT
  Age: 49 Year
  Sex: Female
  Weight: 99 kg

DRUGS (7)
  1. PROGRAF [Suspect]
     Indication: RENAL TRANSPLANT
     Dosage: 0.5 MG, UID/QD
     Route: 065
     Dates: start: 2009, end: 20130712
  2. PROGRAF [Suspect]
     Indication: PANCREAS TRANSPLANT
     Dosage: UNK
     Route: 065
     Dates: start: 199907
  3. PREDNISONE [Suspect]
     Indication: PRODUCT USED FOR UNKNOWN INDICATION
     Dosage: UNK
     Route: 065
  4. INSULIN [Concomitant]
     Indication: DIABETES MELLITUS
     Dosage: UNK
     Route: 065
     Dates: start: 201301
  5. CELLCEPT                           /01275102/ [Concomitant]
     Indication: RENAL TRANSPLANT
     Dosage: UNK
     Route: 065
     Dates: end: 20130712
  6. LASIX                              /00032601/ [Concomitant]
     Indication: PRODUCT USED FOR UNKNOWN INDICATION
     Dosage: UNK
     Route: 065
  7. ZAROXOLYN [Concomitant]
     Indication: PRODUCT USED FOR UNKNOWN INDICATION
     Dosage: UNK
     Route: 065

REACTIONS (34)
  - Off label use [Unknown]
  - Renal transplant [Unknown]
  - Transplant failure [Unknown]
  - Cardiac failure congestive [Fatal]
  - Osteonecrosis [Unknown]
  - Femoral artery occlusion [Unknown]
  - Nephropathy toxic [Unknown]
  - Transplant rejection [Unknown]
  - Toxicity to various agents [Unknown]
  - Lung disorder [Unknown]
  - Coronary artery disease [Unknown]
  - Renal failure [Unknown]
  - Escherichia sepsis [Unknown]
  - Urinary tract infection [Unknown]
  - Pyelonephritis [Unknown]
  - Hyponatraemia [Unknown]
  - Chronic allograft nephropathy [Unknown]
  - Post procedural infection [Unknown]
  - Skin papilloma [Unknown]
  - Limb injury [Unknown]
  - Skin ulcer [Unknown]
  - Finger amputation [Unknown]
  - Toe amputation [Unknown]
  - Ostectomy [Unknown]
  - Peripheral vascular disorder [Unknown]
  - Cellulitis [Unknown]
  - Cellulitis [Unknown]
  - Pulse pressure decreased [Unknown]
  - Sleep apnoea syndrome [Unknown]
  - Decubitus ulcer [Unknown]
  - Muscular weakness [Unknown]
  - Dyspnoea exertional [Not Recovered/Not Resolved]
  - Emotional distress [Not Recovered/Not Resolved]
  - Emotional distress [Unknown]
